FAERS Safety Report 23298226 (Version 1)
Quarter: 2023Q4

REPORT INFORMATION
  Report Type: Spontaneous
  Country: US (occurrence: None)
  Receive Date: 20231214
  Receipt Date: 20231214
  Transmission Date: 20240109
  Serious: Yes (Hospitalization)
  Sender: FDA-Public Use
  Company Number: None

PATIENT
  Age: 49 Year
  Sex: Male

DRUGS (3)
  1. AMBRISENTAN [Suspect]
     Active Substance: AMBRISENTAN
     Indication: Pulmonary arterial hypertension
     Dosage: FREQUENCY : DAILY;?
     Route: 048
  2. TADALAFIL [Suspect]
     Active Substance: TADALAFIL
  3. TREPROSTINIL [Suspect]
     Active Substance: TREPROSTINIL

REACTIONS (8)
  - Pulmonary arterial hypertension [None]
  - Condition aggravated [None]
  - Peripheral swelling [None]
  - Fluid retention [None]
  - Fatigue [None]
  - Decreased appetite [None]
  - Weight decreased [None]
  - Treatment noncompliance [None]

NARRATIVE: CASE EVENT DATE: 20231213
